FAERS Safety Report 4722602-5 (Version None)
Quarter: 2005Q3

REPORT INFORMATION
  Report Type: 
  Country: None (occurrence: None)
  Receive Date: 20050722
  Receipt Date: 20050707
  Transmission Date: 20060218
  Serious: Yes (Death, Hospitalization, Other)
  Sender: FDA-Public Use
  Company Number: TR-ABBOTT-05P-062-0305566-00

PATIENT
  Age: 67 Year
  Sex: Male

DRUGS (4)
  1. BIAXIN [Suspect]
     Indication: UPPER RESPIRATORY TRACT INFECTION
  2. COLCHICINE TABLETS [Interacting]
     Indication: AMYLOIDOSIS
  3. EPOGEN [Concomitant]
  4. CALCIUM CARBONATE [Concomitant]

REACTIONS (10)
  - ABDOMINAL PAIN [None]
  - BONE MARROW DEPRESSION [None]
  - DIARRHOEA [None]
  - DRUG INTERACTION [None]
  - DRUG TOXICITY [None]
  - LIVER DISORDER [None]
  - MULTI-ORGAN FAILURE [None]
  - MYALGIA [None]
  - PANCYTOPENIA [None]
  - PYREXIA [None]
